FAERS Safety Report 4287309-X (Version None)
Quarter: 2004Q1

REPORT INFORMATION
  Report Type: 
  Country: None (occurrence: None)
  Receive Date: 20040205
  Receipt Date: 20040120
  Transmission Date: 20041129
  Serious: Yes (Disabling)
  Sender: FDA-Public Use
  Company Number: EWC040137747

PATIENT
  Age: 43 Year
  Sex: Female
  Weight: 48 kg

DRUGS (2)
  1. HUMULIN 70/30 [Suspect]
     Indication: DIABETES MELLITUS
     Dosage: 26 IU/DAY
     Dates: start: 20010101
  2. HUMULIN R [Suspect]
     Indication: DIABETES MELLITUS
     Dosage: 16 IU/DAY
     Dates: start: 20010101

REACTIONS (3)
  - INJECTION SITE PUSTULE [None]
  - INJECTION SITE VESICLES [None]
  - PHARMACEUTICAL PRODUCT COMPLAINT [None]
